FAERS Safety Report 24424333 (Version 2)
Quarter: 2024Q4

REPORT INFORMATION
  Report Type: Spontaneous
  Country: CA (occurrence: CA)
  Receive Date: 20241010
  Receipt Date: 20241012
  Transmission Date: 20250115
  Serious: Yes (Hospitalization, Other)
  Sender: ALEXION PHARMACEUTICALS
  Company Number: CA-AstraZeneca-CH-00711517A

PATIENT
  Age: 78 Year
  Weight: 93 kg

DRUGS (89)
  1. PULMICORT TURBUHALER [Suspect]
     Active Substance: BUDESONIDE
     Indication: Product used for unknown indication
  2. PULMICORT TURBUHALER [Suspect]
     Active Substance: BUDESONIDE
  3. PULMICORT TURBUHALER [Suspect]
     Active Substance: BUDESONIDE
  4. PULMICORT TURBUHALER [Suspect]
     Active Substance: BUDESONIDE
  5. BUDESONIDE [Concomitant]
     Active Substance: BUDESONIDE
     Indication: Product used for unknown indication
     Route: 065
  6. BUDESONIDE [Concomitant]
     Active Substance: BUDESONIDE
  7. BUDESONIDE [Concomitant]
     Active Substance: BUDESONIDE
     Route: 065
  8. BUDESONIDE [Concomitant]
     Active Substance: BUDESONIDE
  9. BUDESONIDE [Concomitant]
     Active Substance: BUDESONIDE
     Indication: Product used for unknown indication
  10. BUDESONIDE [Concomitant]
     Active Substance: BUDESONIDE
  11. BUDESONIDE [Concomitant]
     Active Substance: BUDESONIDE
     Route: 065
  12. CANDESARTAN [Concomitant]
     Active Substance: CANDESARTAN
     Indication: Product used for unknown indication
  13. CANDESARTAN [Concomitant]
     Active Substance: CANDESARTAN
  14. QUETIAPINE FUMARATE [Concomitant]
     Active Substance: QUETIAPINE FUMARATE
     Indication: Product used for unknown indication
  15. QUETIAPINE FUMARATE [Concomitant]
     Active Substance: QUETIAPINE FUMARATE
  16. QUETIAPINE FUMARATE [Concomitant]
     Active Substance: QUETIAPINE FUMARATE
  17. QUETIAPINE FUMARATE [Concomitant]
     Active Substance: QUETIAPINE FUMARATE
  18. QUETIAPINE FUMARATE [Concomitant]
     Active Substance: QUETIAPINE FUMARATE
  19. QUETIAPINE FUMARATE [Concomitant]
     Active Substance: QUETIAPINE FUMARATE
  20. QUETIAPINE FUMARATE [Concomitant]
     Active Substance: QUETIAPINE FUMARATE
  21. QUETIAPINE FUMARATE [Concomitant]
     Active Substance: QUETIAPINE FUMARATE
  22. ROSUVASTATIN CALCIUM [Concomitant]
     Active Substance: ROSUVASTATIN CALCIUM
     Indication: Product used for unknown indication
  23. ROSUVASTATIN CALCIUM [Concomitant]
     Active Substance: ROSUVASTATIN CALCIUM
  24. ROSUVASTATIN CALCIUM [Concomitant]
     Active Substance: ROSUVASTATIN CALCIUM
  25. ROSUVASTATIN CALCIUM [Concomitant]
     Active Substance: ROSUVASTATIN CALCIUM
  26. ROSUVASTATIN CALCIUM [Concomitant]
     Active Substance: ROSUVASTATIN CALCIUM
  27. ROSUVASTATIN CALCIUM [Concomitant]
     Active Substance: ROSUVASTATIN CALCIUM
  28. ROSUVASTATIN CALCIUM [Concomitant]
     Active Substance: ROSUVASTATIN CALCIUM
  29. ROSUVASTATIN CALCIUM [Concomitant]
     Active Substance: ROSUVASTATIN CALCIUM
  30. MONTELUKAST [Concomitant]
     Active Substance: MONTELUKAST
  31. MONTELUKAST [Concomitant]
     Active Substance: MONTELUKAST
     Route: 065
  32. ACETAMINOPHEN [Suspect]
     Active Substance: ACETAMINOPHEN
  33. ACETAMINOPHEN [Suspect]
     Active Substance: ACETAMINOPHEN
  34. ATROVENT [Suspect]
     Active Substance: IPRATROPIUM BROMIDE
     Route: 065
  35. ATROVENT [Suspect]
     Active Substance: IPRATROPIUM BROMIDE
  36. ATROVENT [Suspect]
     Active Substance: IPRATROPIUM BROMIDE
     Route: 065
  37. ATROVENT [Suspect]
     Active Substance: IPRATROPIUM BROMIDE
  38. AZITHROMYCIN [Suspect]
     Active Substance: AZITHROMYCIN
     Route: 065
  39. AZITHROMYCIN [Suspect]
     Active Substance: AZITHROMYCIN
  40. AZITHROMYCIN [Suspect]
     Active Substance: AZITHROMYCIN
     Route: 065
  41. AZITHROMYCIN [Suspect]
     Active Substance: AZITHROMYCIN
  42. BISACODYL [Suspect]
     Active Substance: BISACODYL
  43. BISACODYL [Suspect]
     Active Substance: BISACODYL
  44. BUDESONIDE\FORMOTEROL FUMARATE [Suspect]
     Active Substance: BUDESONIDE\FORMOTEROL FUMARATE
  45. BUDESONIDE\FORMOTEROL FUMARATE [Suspect]
     Active Substance: BUDESONIDE\FORMOTEROL FUMARATE
     Route: 065
  46. DEXILANT [Suspect]
     Active Substance: DEXLANSOPRAZOLE
  47. DEXILANT [Suspect]
     Active Substance: DEXLANSOPRAZOLE
     Route: 065
  48. DOMPERIDONE [Suspect]
     Active Substance: DOMPERIDONE
  49. FORMOTEROL FUMARATE [Suspect]
     Active Substance: FORMOTEROL FUMARATE
  50. FORMOTEROL FUMARATE [Suspect]
     Active Substance: FORMOTEROL FUMARATE
     Route: 065
  51. NITROGLYCERIN [Suspect]
     Active Substance: NITROGLYCERIN
  52. NITROGLYCERIN [Suspect]
     Active Substance: NITROGLYCERIN
     Route: 065
  53. INFLUENZA VIRUS VACCINE [Suspect]
     Active Substance: INFLUENZA VIRUS VACCINE
  54. INFLUENZA VIRUS VACCINE [Suspect]
     Active Substance: INFLUENZA VIRUS VACCINE
     Route: 065
  55. JUBLIA [Suspect]
     Active Substance: EFINACONAZOLE
  56. JUBLIA [Suspect]
     Active Substance: EFINACONAZOLE
     Route: 065
  57. LANSOPRAZOLE [Suspect]
     Active Substance: LANSOPRAZOLE
  58. LEVOTHYROXINE SODIUM [Suspect]
     Active Substance: LEVOTHYROXINE SODIUM
  59. MOMETASONE [Suspect]
     Active Substance: MOMETASONE
  60. MONTELUKAST [Suspect]
     Active Substance: MONTELUKAST
  61. MORPHINE HYDROCHLORIDE [Suspect]
     Active Substance: MORPHINE HYDROCHLORIDE
  62. NASONEX [Suspect]
     Active Substance: MOMETASONE FUROATE
  63. NITROGLYCERIN [Suspect]
     Active Substance: NITROGLYCERIN
  64. NUCALA [Suspect]
     Active Substance: MEPOLIZUMAB
  65. OMALIZUMAB [Suspect]
     Active Substance: OMALIZUMAB
  66. PANTOPRAZOLE SODIUM [Suspect]
     Active Substance: PANTOPRAZOLE SODIUM
  67. PRAMIPEXOLE [Suspect]
     Active Substance: PRAMIPEXOLE\PRAMIPEXOLE DIHYDROCHLORIDE
  68. PREGABALIN [Suspect]
     Active Substance: PREGABALIN
  69. PREVACID [Suspect]
     Active Substance: LANSOPRAZOLE
  70. PREVACID [Suspect]
     Active Substance: LANSOPRAZOLE
  71. PYRILAMINE MALEATE [Suspect]
     Active Substance: PYRILAMINE MALEATE
  72. ALBUTEROL [Suspect]
     Active Substance: ALBUTEROL
  73. SENNOSIDES [Suspect]
     Active Substance: SENNOSIDES
  74. SENOKOT [Suspect]
     Active Substance: SENNOSIDES
  75. SINGULAIR [Suspect]
     Active Substance: MONTELUKAST SODIUM
  76. SINGULAIR [Suspect]
     Active Substance: MONTELUKAST SODIUM
  77. SPIRIVA [Suspect]
     Active Substance: TIOTROPIUM BROMIDE MONOHYDRATE
  78. MORPHINE SULFATE [Suspect]
     Active Substance: MORPHINE SULFATE
  79. SYNTHROID [Suspect]
     Active Substance: LEVOTHYROXINE SODIUM
  80. SYNTHROID [Suspect]
     Active Substance: LEVOTHYROXINE SODIUM
     Route: 065
  81. VENTOLIN [Suspect]
     Active Substance: ALBUTEROL SULFATE
     Route: 065
  82. VENTOLIN [Suspect]
     Active Substance: ALBUTEROL SULFATE
  83. VENTOLIN [Suspect]
     Active Substance: ALBUTEROL SULFATE
     Route: 065
  84. VENTOLIN [Suspect]
     Active Substance: ALBUTEROL SULFATE
  85. VITAMIN D [Suspect]
     Active Substance: VITAMIN D NOS
     Route: 065
  86. VITAMIN D [Suspect]
     Active Substance: VITAMIN D NOS
  87. VITAMIN D [Suspect]
     Active Substance: VITAMIN D NOS
     Route: 065
  88. VITAMIN D [Suspect]
     Active Substance: VITAMIN D NOS
  89. ZOPICLONE [Suspect]
     Active Substance: ZOPICLONE

REACTIONS (40)
  - Abdominal pain upper [Not Recovered/Not Resolved]
  - Anaemia [Not Recovered/Not Resolved]
  - Aspiration [Not Recovered/Not Resolved]
  - Asthenia [Not Recovered/Not Resolved]
  - Asthma [Not Recovered/Not Resolved]
  - Blood calcium increased [Not Recovered/Not Resolved]
  - Blood test abnormal [Not Recovered/Not Resolved]
  - Bronchiectasis [Not Recovered/Not Resolved]
  - Bronchopulmonary aspergillosis allergic [Not Recovered/Not Resolved]
  - Constipation [Not Recovered/Not Resolved]
  - Cough [Not Recovered/Not Resolved]
  - Drug hypersensitivity [Not Recovered/Not Resolved]
  - Dyspnoea [Not Recovered/Not Resolved]
  - Effusion [Not Recovered/Not Resolved]
  - Fatigue [Not Recovered/Not Resolved]
  - General physical health deterioration [Not Recovered/Not Resolved]
  - Haemoptysis [Not Recovered/Not Resolved]
  - Headache [Not Recovered/Not Resolved]
  - Hypoxia [Not Recovered/Not Resolved]
  - Drug ineffective [Not Recovered/Not Resolved]
  - Liver function test increased [Not Recovered/Not Resolved]
  - Lower respiratory tract infection [Not Recovered/Not Resolved]
  - Lung opacity [Not Recovered/Not Resolved]
  - Musculoskeletal stiffness [Not Recovered/Not Resolved]
  - Obstructive airways disorder [Not Recovered/Not Resolved]
  - Oedema peripheral [Not Recovered/Not Resolved]
  - Pain [Not Recovered/Not Resolved]
  - Pleuritic pain [Not Recovered/Not Resolved]
  - Pneumococcal infection [Not Recovered/Not Resolved]
  - Pneumonia [Not Recovered/Not Resolved]
  - Product dose omission issue [Not Recovered/Not Resolved]
  - Pulmonary fibrosis [Not Recovered/Not Resolved]
  - Pyrexia [Not Recovered/Not Resolved]
  - Sputum discoloured [Not Recovered/Not Resolved]
  - Total lung capacity decreased [Not Recovered/Not Resolved]
  - Transaminases increased [Not Recovered/Not Resolved]
  - Tremor [Not Recovered/Not Resolved]
  - Upper respiratory tract infection [Not Recovered/Not Resolved]
  - Wheezing [Not Recovered/Not Resolved]
  - Blood creatinine increased [Not Recovered/Not Resolved]
